FAERS Safety Report 20563829 (Version 1)
Quarter: 2022Q1

REPORT INFORMATION
  Report Type: Spontaneous
  Country: US (occurrence: US)
  Receive Date: 20220308
  Receipt Date: 20220308
  Transmission Date: 20220423
  Serious: No
  Sender: FDA-Public Use
  Company Number: US-SA-SAC20220225000711

PATIENT
  Age: 72 Year
  Sex: Female

DRUGS (1)
  1. DUPIXENT [Suspect]
     Active Substance: DUPILUMAB
     Dosage: 300MG/2ML FREQUENCY- OTHER
     Route: 058

REACTIONS (2)
  - Glossodynia [Unknown]
  - Oral pain [Unknown]

NARRATIVE: CASE EVENT DATE: 20211101
